FAERS Safety Report 7583413-9 (Version None)
Quarter: 2011Q2

REPORT INFORMATION
  Report Type: 
  Country: None (occurrence: None)
  Receive Date: 20110630
  Receipt Date: 20110622
  Transmission Date: 20111010
  Serious: Yes (Hospitalization, Other)
  Sender: FDA-Public Use
  Company Number: US-CUBIST-2011S1000318

PATIENT
  Age: 42 Year
  Sex: Male
  Weight: 78.2 kg

DRUGS (2)
  1. CUBICIN [Suspect]
     Route: 042
     Dates: start: 20110429, end: 20110501
  2. CUBICIN [Suspect]
     Indication: OSTEOMYELITIS
     Route: 042
     Dates: start: 20110429, end: 20110501

REACTIONS (3)
  - OEDEMA PERIPHERAL [None]
  - RHABDOMYOLYSIS [None]
  - PAIN IN EXTREMITY [None]
